FAERS Safety Report 10841452 (Version 1)
Quarter: 2015Q1

REPORT INFORMATION
  Report Type: Spontaneous
  Country: US (occurrence: US)
  Receive Date: 20150220
  Receipt Date: 20150220
  Transmission Date: 20150721
  Serious: No
  Sender: FDA-Public Use
  Company Number: US-DRREDDYS-USA/USA/14/0045227

PATIENT
  Age: 29 Year
  Sex: Female
  Weight: 86.18 kg

DRUGS (1)
  1. SUMATRIPTAN INJECTION USP, 6 MG/0.5 ML [Suspect]
     Active Substance: SUMATRIPTAN
     Indication: MIGRAINE
     Route: 030
     Dates: start: 20141229

REACTIONS (2)
  - Drug dose omission [Unknown]
  - Product physical issue [Unknown]
